FAERS Safety Report 14793994 (Version 5)
Quarter: 2018Q3

REPORT INFORMATION
  Report Type: Spontaneous
  Country: DE (occurrence: DE)
  Receive Date: 20180423
  Receipt Date: 20180919
  Transmission Date: 20181010
  Serious: Yes (Hospitalization, Other)
  Sender: FDA-Public Use
  Company Number: DE-REGENERON PHARMACEUTICALS, INC.-2018-21863

PATIENT

DRUGS (2)
  1. EYLEA [Suspect]
     Active Substance: AFLIBERCEPT
     Indication: DIABETIC RETINAL OEDEMA
     Dosage: 0.05 ML, LEFT EYE
     Route: 031
     Dates: start: 20171205, end: 20171205
  2. AVASTIN [Concomitant]
     Active Substance: BEVACIZUMAB
     Indication: PRODUCT USED FOR UNKNOWN INDICATION
     Route: 031

REACTIONS (7)
  - Vision blurred [Recovering/Resolving]
  - Endophthalmitis [Recovered/Resolved]
  - Deposit eye [Recovering/Resolving]
  - Vitreous haemorrhage [Recovering/Resolving]
  - Cataract [Unknown]
  - Wrong technique in product usage process [Unknown]
  - Iridocyclitis [Recovering/Resolving]

NARRATIVE: CASE EVENT DATE: 20171207
